FAERS Safety Report 16858245 (Version 1)
Quarter: 2019Q3

REPORT INFORMATION
  Report Type: Spontaneous
  Country: RS (occurrence: RS)
  Receive Date: 20190926
  Receipt Date: 20190926
  Transmission Date: 20191005
  Serious: Yes (Other)
  Sender: FDA-Public Use
  Company Number: RS-JNJFOC-20190927360

PATIENT
  Sex: Female

DRUGS (4)
  1. ARIPIPRAZOL [Concomitant]
     Active Substance: ARIPIPRAZOLE
  2. EFTIL                              /01294701/ [Concomitant]
     Dosage: SODIUM VALPROATE AND VALPROIC ACID
  3. BENSEDIN [Concomitant]
  4. PALIPERIDONE PALMITATE [Suspect]
     Active Substance: PALIPERIDONE PALMITATE
     Indication: PRODUCT USED FOR UNKNOWN INDICATION
     Route: 030

REACTIONS (1)
  - Breast cancer [Unknown]
